FAERS Safety Report 5364186-7 (Version None)
Quarter: 2007Q2

REPORT INFORMATION
  Report Type: 
  Country: None (occurrence: None)
  Receive Date: 20070620
  Receipt Date: 20070608
  Transmission Date: 20071010
  Serious: Yes (Other)
  Sender: FDA-Public Use
  Company Number: JP-PFIZER INC-2007048425

PATIENT
  Age: 72 Year
  Sex: Female

DRUGS (7)
  1. NORVASC [Suspect]
     Route: 048
  2. OLMETEC [Concomitant]
     Route: 048
  3. DEPAS [Concomitant]
     Route: 048
  4. ALMARL [Concomitant]
     Route: 048
  5. AZULFIDINE [Concomitant]
     Route: 048
  6. KARY UNI [Concomitant]
     Route: 031
  7. MYTEAR [Concomitant]
     Route: 031

REACTIONS (1)
  - RETINAL OEDEMA [None]
